FAERS Safety Report 5031145-3 (Version None)
Quarter: 2006Q2

REPORT INFORMATION
  Report Type: 
  Country: None (occurrence: None)
  Receive Date: 20060621
  Receipt Date: 20050621
  Transmission Date: 20061013
  Serious: No
  Sender: FDA-Public Use
  Company Number: US-BRISTOL-MYERS SQUIBB COMPANY-13012505

PATIENT

DRUGS (1)
  1. ETOPOPHOS [Suspect]
     Route: 042

REACTIONS (1)
  - HYPERSENSITIVITY [None]
